FAERS Safety Report 13491490 (Version 1)
Quarter: 2017Q2

REPORT INFORMATION
  Report Type: Spontaneous
  Country: FR (occurrence: FR)
  Receive Date: 20170427
  Receipt Date: 20170427
  Transmission Date: 20170830
  Serious: Yes (Hospitalization, Other)
  Sender: FDA-Public Use
  Company Number: FR-BRISTOL-MYERS SQUIBB COMPANY-BMS-2017-034919

PATIENT
  Age: 63 Year
  Sex: Male

DRUGS (7)
  1. BECOTIDE A [Concomitant]
     Indication: ATRIAL FIBRILLATION
     Route: 050
  2. OPDIVO [Suspect]
     Active Substance: NIVOLUMAB
     Indication: LUNG ADENOCARCINOMA
     Dosage: 3 MG/KG, UNK (310 MG)
     Route: 042
     Dates: start: 20161108
  3. BISOPROLOL                         /00802602/ [Concomitant]
     Active Substance: BISOPROLOL
     Indication: ATRIAL FIBRILLATION
     Dosage: 2.5 MG, BID
     Route: 065
  4. AMIODARONE [Concomitant]
     Active Substance: AMIODARONE
     Indication: ATRIAL FIBRILLATION
     Dosage: 200 MG, QD
     Route: 065
  5. INEXIUM                            /01479302/ [Concomitant]
     Active Substance: ESOMEPRAZOLE MAGNESIUM
     Indication: ATRIAL FIBRILLATION
     Dosage: 40 MG, QD
     Route: 065
  6. DUROGESIC SMAT [Concomitant]
     Active Substance: FENTANYL
     Indication: ATRIAL FIBRILLATION
     Dosage: 75 ?G, UNK
     Route: 065
  7. ABSTRAL [Concomitant]
     Active Substance: FENTANYL CITRATE
     Indication: ATRIAL FIBRILLATION
     Dosage: 100 ?G, QID
     Route: 065

REACTIONS (3)
  - Hepatic enzyme increased [Unknown]
  - Acute kidney injury [Recovered/Resolved]
  - Hyperkalaemia [Recovered/Resolved]

NARRATIVE: CASE EVENT DATE: 20161122
